FAERS Safety Report 6654672-1 (Version None)
Quarter: 2010Q1

REPORT INFORMATION
  Report Type: 
  Country: None (occurrence: None)
  Receive Date: 20100326
  Receipt Date: 20100322
  Transmission Date: 20100710
  Serious: Yes (Hospitalization)
  Sender: FDA-Public Use
  Company Number: FR-MERCK-1003FRA00067

PATIENT
  Age: 51 Year
  Sex: Male

DRUGS (12)
  1. EMEND [Suspect]
     Indication: PROPHYLAXIS OF NAUSEA AND VOMITING
     Route: 048
     Dates: start: 20100106, end: 20100106
  2. EMEND [Suspect]
     Route: 048
     Dates: start: 20100105, end: 20100105
  3. EMEND [Suspect]
     Route: 048
     Dates: start: 20100107, end: 20100107
  4. EMEND [Suspect]
     Route: 048
     Dates: start: 20100125, end: 20100125
  5. FLUOROURACIL [Suspect]
     Indication: NEOPLASM MALIGNANT
     Route: 042
     Dates: start: 20100105, end: 20100109
  6. FLUOROURACIL [Suspect]
     Route: 042
     Dates: start: 20100125, end: 20100129
  7. DOCETAXEL [Suspect]
     Indication: NEOPLASM MALIGNANT
     Route: 042
     Dates: start: 20100125, end: 20100125
  8. DOCETAXEL [Suspect]
     Route: 042
     Dates: start: 20100105, end: 20100105
  9. CISPLATIN [Suspect]
     Indication: NEOPLASM MALIGNANT
     Route: 042
     Dates: start: 20100105, end: 20100105
  10. CISPLATIN [Suspect]
     Route: 042
     Dates: start: 20100125, end: 20100125
  11. ONDANSETRON HYDROCHLORIDE [Suspect]
     Route: 042
     Dates: start: 20100105, end: 20100105
  12. ONDANSETRON HYDROCHLORIDE [Suspect]
     Route: 042
     Dates: start: 20100125, end: 20100125

REACTIONS (1)
  - HEPATITIS [None]
